FAERS Safety Report 7807556-7 (Version None)
Quarter: 2011Q4

REPORT INFORMATION
  Report Type: 
  Country: None (occurrence: None)
  Receive Date: 20111011
  Receipt Date: 20110927
  Transmission Date: 20120403
  Serious: Yes (Other)
  Sender: FDA-Public Use
  Company Number: AU-VIIV HEALTHCARE LIMITED-B0752348A

PATIENT
  Age: 56 Year
  Sex: Male

DRUGS (6)
  1. RALTEGRAVIR [Suspect]
     Indication: HIV INFECTION
     Route: 065
     Dates: start: 20070301
  2. ZIDOVUDINE [Suspect]
     Indication: HIV INFECTION
     Route: 065
     Dates: start: 20070301
  3. DARUNAVIR [Suspect]
     Indication: HIV INFECTION
     Route: 065
     Dates: start: 20070301
  4. TENOFOVIR DISOPROXIL FUMARATE [Suspect]
     Indication: HIV INFECTION
     Route: 065
     Dates: start: 20070301
  5. EMTRICITABINE [Suspect]
     Indication: HIV INFECTION
     Route: 065
     Dates: start: 20070301
  6. ETRAVIRINE [Suspect]
     Indication: HIV INFECTION
     Route: 065
     Dates: start: 20070301

REACTIONS (17)
  - NEOPLASM MALIGNANT [None]
  - SQUAMOUS CELL CARCINOMA OF SKIN [None]
  - RHEUMATOID ARTHRITIS [None]
  - IMMUNE RECONSTITUTION SYNDROME [None]
  - LETHARGY [None]
  - GENERALISED OEDEMA [None]
  - DYSPHONIA [None]
  - BLOOD THYROID STIMULATING HORMONE INCREASED [None]
  - ARTHRALGIA [None]
  - HYPERTHYROIDISM [None]
  - HYPOTHYROIDISM [None]
  - WOUND [None]
  - WEIGHT INCREASED [None]
  - ARTHRITIS [None]
  - RHEUMATOID FACTOR INCREASED [None]
  - CRYOGLOBULINS PRESENT [None]
  - SYNOVITIS [None]
